FAERS Safety Report 9912480 (Version 1)
Quarter: 2014Q1

REPORT INFORMATION
  Report Type: Spontaneous
  Country: BR (occurrence: BR)
  Receive Date: 20140220
  Receipt Date: 20140220
  Transmission Date: 20141002
  Serious: Yes (Hospitalization)
  Sender: FDA-Public Use
  Company Number: BR-SHIRE-ALL1-2014-01191

PATIENT
  Age: 12 Year
  Sex: Male
  Weight: 60 kg

DRUGS (2)
  1. VENVANSE [Suspect]
     Indication: ATTENTION DEFICIT/HYPERACTIVITY DISORDER
     Dosage: 30 MG, UNKNOWN
     Route: 048
     Dates: start: 20131101, end: 20131115
  2. VENVANSE [Suspect]
     Dosage: 30 MG, UNKNOWN
     Route: 048
     Dates: start: 20140214

REACTIONS (11)
  - Paraesthesia [Recovering/Resolving]
  - Chills [Recovering/Resolving]
  - Pain [Recovering/Resolving]
  - Hypoglycaemia [Unknown]
  - Hypotension [Recovering/Resolving]
  - Delirium [Recovering/Resolving]
  - Loss of control of legs [Recovering/Resolving]
  - Hyperhidrosis [Recovering/Resolving]
  - Dyspnoea [Recovering/Resolving]
  - Headache [Recovering/Resolving]
  - Aggression [Not Recovered/Not Resolved]
